FAERS Safety Report 16776073 (Version 1)
Quarter: 2019Q3

REPORT INFORMATION
  Report Type: Spontaneous
  Country: US (occurrence: US)
  Receive Date: 20190905
  Receipt Date: 20190905
  Transmission Date: 20191005
  Serious: No
  Sender: FDA-Public Use
  Company Number: US-VIFOR (INTERNATIONAL) INC.-VIT-2019-07752

PATIENT
  Age: 83 Year
  Sex: Female

DRUGS (3)
  1. VELTASSA [Suspect]
     Active Substance: PATIROMER
     Indication: HYPERKALAEMIA
     Route: 048
     Dates: start: 201907, end: 20190730
  2. CLINDAMYCIN. [Concomitant]
     Active Substance: CLINDAMYCIN
  3. LANTUS SOLOS [Concomitant]

REACTIONS (5)
  - Gastric dilatation [Not Recovered/Not Resolved]
  - Constipation [Unknown]
  - Pain [Not Recovered/Not Resolved]
  - Ill-defined disorder [Not Recovered/Not Resolved]
  - Abdominal discomfort [Unknown]

NARRATIVE: CASE EVENT DATE: 201907
